FAERS Safety Report 13189595 (Version 2)
Quarter: 2017Q1

REPORT INFORMATION
  Report Type: Spontaneous
  Country: US (occurrence: US)
  Receive Date: 20170206
  Receipt Date: 20170321
  Transmission Date: 20170428
  Serious: Yes (Hospitalization, Other)
  Sender: FDA-Public Use
  Company Number: US-PFIZER INC-2017047247

PATIENT
  Age: 78 Year
  Sex: Female
  Weight: 80.29 kg

DRUGS (7)
  1. IBRANCE [Suspect]
     Active Substance: PALBOCICLIB
     Indication: BREAST CANCER METASTATIC
     Dosage: 125 MG, CYCLIC [125MG CAPSULE BY MOUTH, ONE CAPSULE DAILY FOR 21 DAYS, THEN 7 DAYS OFF]
     Route: 048
     Dates: start: 20161222, end: 20170120
  2. ZOMETA [Concomitant]
     Active Substance: ZOLEDRONIC ACID
     Indication: METASTASES TO BONE
     Dosage: 3MG IV PIGGYBACK, ONE TIME DOSE
     Route: 042
     Dates: start: 20170113, end: 20170113
  3. FASLODEX [Concomitant]
     Active Substance: FULVESTRANT
     Dosage: UNK
     Dates: start: 20161222, end: 20161222
  4. IBRANCE [Suspect]
     Active Substance: PALBOCICLIB
     Dosage: 125 MG, CYCLIC [125 MG PO QD FOR 21 DAYS THEN 7 OFF]
     Route: 048
     Dates: start: 20170213, end: 20170227
  5. FASLODEX [Concomitant]
     Active Substance: FULVESTRANT
     Dosage: UNK
     Dates: start: 20170106, end: 20170106
  6. FASLODEX [Concomitant]
     Active Substance: FULVESTRANT
     Dosage: UNK
     Dates: start: 20170120, end: 20170120
  7. FASLODEX [Concomitant]
     Active Substance: FULVESTRANT
     Indication: BREAST CANCER METASTATIC
     Dosage: 500 MG, UNK
     Route: 030
     Dates: start: 201601

REACTIONS (5)
  - Hypocalcaemia [Recovering/Resolving]
  - Urine analysis abnormal [Recovered/Resolved]
  - Enterococcal infection [Unknown]
  - Anaemia [Unknown]
  - Acute kidney injury [Recovered/Resolved]

NARRATIVE: CASE EVENT DATE: 20170120
